FAERS Safety Report 23336150 (Version 1)
Quarter: 2023Q4

REPORT INFORMATION
  Report Type: Spontaneous
  Country: MA (occurrence: MA)
  Receive Date: 20231225
  Receipt Date: 20231225
  Transmission Date: 20240110
  Serious: Yes (Hospitalization)
  Sender: FDA-Public Use
  Company Number: MA-STRIDES ARCOLAB LIMITED-2023SP018858

PATIENT
  Age: 29 Year
  Sex: Male

DRUGS (6)
  1. HALOPERIDOL [Suspect]
     Active Substance: HALOPERIDOL
     Indication: Schizophrenia
     Dosage: 12 MILLIGRAM DAILY
     Route: 065
     Dates: start: 2013, end: 2016
  2. HALOPERIDOL [Suspect]
     Active Substance: HALOPERIDOL
     Dosage: 150 MILLIGRAM, INJECTION, PER MONTH (HALOPERIDOL-DECANOATE)
     Route: 065
     Dates: start: 2016
  3. AMANTADINE [Suspect]
     Active Substance: AMANTADINE
     Indication: Tardive dyskinesia
     Dosage: 300 MILLIGRAM DAILY
     Route: 065
  4. ALPRAZOLAM [Suspect]
     Active Substance: ALPRAZOLAM
     Indication: Depression
     Dosage: 3 MILLIGRAM DAILY (DISCONTINUED ON HIS OWN)
     Route: 065
  5. CHLORPROMAZINE [Suspect]
     Active Substance: CHLORPROMAZINE
     Indication: Schizophrenia
     Dosage: 300 MILLIGRAM DAILY
     Route: 065
     Dates: start: 2013, end: 2016
  6. CHLORPROMAZINE [Suspect]
     Active Substance: CHLORPROMAZINE
     Dosage: UNK
     Route: 065

REACTIONS (5)
  - Intentional product misuse [Unknown]
  - Dystonia [Recovered/Resolved]
  - Tardive dyskinesia [Recovered/Resolved]
  - Treatment noncompliance [Unknown]
  - Off label use [Unknown]

NARRATIVE: CASE EVENT DATE: 20130101
